FAERS Safety Report 7711499-7 (Version None)
Quarter: 2011Q3

REPORT INFORMATION
  Report Type: 
  Country: None (occurrence: None)
  Receive Date: 20110826
  Receipt Date: 20110822
  Transmission Date: 20111222
  Serious: Yes (Death, Hospitalization)
  Sender: FDA-Public Use
  Company Number: CA-ABBOTT-11P-028-0844296-00

PATIENT
  Sex: Male
  Weight: 84.444 kg

DRUGS (1)
  1. LUPRON DEPOT [Suspect]
     Indication: PROSTATE CANCER
     Route: 030
     Dates: start: 20080721

REACTIONS (2)
  - ONCOLOGIC COMPLICATION [None]
  - METASTATIC PAIN [None]
